FAERS Safety Report 8120549-8 (Version None)
Quarter: 2012Q1

REPORT INFORMATION
  Report Type: 
  Country: None (occurrence: None)
  Receive Date: 20120207
  Receipt Date: 20120204
  Transmission Date: 20120608
  Serious: Yes (Other)
  Sender: FDA-Public Use
  Company Number: ES-PFIZER INC-2012021600

PATIENT
  Age: 50 Year
  Sex: Female

DRUGS (1)
  1. IBUPROFEN [Suspect]
     Indication: HEADACHE
     Dosage: UNK
     Route: 048

REACTIONS (4)
  - LOSS OF CONSCIOUSNESS [None]
  - LYMPHADENOPATHY [None]
  - ANAPHYLACTIC REACTION [None]
  - ANGIOEDEMA [None]
